FAERS Safety Report 18206696 (Version 19)
Quarter: 2024Q4

REPORT INFORMATION
  Report Type: Spontaneous
  Country: US (occurrence: US)
  Receive Date: 20200828
  Receipt Date: 20241204
  Transmission Date: 20250115
  Serious: No
  Sender: PFIZER
  Company Number: US-PFIZER INC-2020334029

PATIENT
  Age: 54 Year
  Sex: Female

DRUGS (7)
  1. SOMAVERT [Suspect]
     Active Substance: PEGVISOMANT
     Indication: Acromegaly
     Dosage: 20 MG, 1X/DAY
     Route: 058
     Dates: start: 20200828
  2. SOMAVERT [Suspect]
     Active Substance: PEGVISOMANT
     Indication: Gigantism
     Dosage: 20 MG, 1X/DAY
     Route: 058
     Dates: start: 20200901
  3. SOMAVERT [Suspect]
     Active Substance: PEGVISOMANT
     Dosage: 25 MG, DAILY AS DIRECTED BY PHYSICIAN
     Route: 058
     Dates: start: 20200901
  4. SOMAVERT [Suspect]
     Active Substance: PEGVISOMANT
     Dosage: 25 MG, DAILY (RECONSTITUTE AND INJECT 25 MG UNDER THE SKIN (SUBCUTANEOUS INJECTION) DAILY AS DIRECTE
     Route: 058
     Dates: start: 20220722
  5. FENOFIBRATE [Concomitant]
     Active Substance: FENOFIBRATE
     Dosage: 160 MG
  6. LANREOTIDE [Concomitant]
     Active Substance: LANREOTIDE
     Dosage: 300 ML
  7. LANREOTIDE [Concomitant]
     Active Substance: LANREOTIDE
     Dosage: UNK, (60/0.2ML)

REACTIONS (15)
  - Product dose omission issue [Unknown]
  - Fatigue [Not Recovered/Not Resolved]
  - Headache [Unknown]
  - Diarrhoea [Unknown]
  - Bowel movement irregularity [Unknown]
  - Constipation [Not Recovered/Not Resolved]
  - Liver function test abnormal [Unknown]
  - Injection site pain [Unknown]
  - Abdominal distension [Not Recovered/Not Resolved]
  - Flatulence [Unknown]
  - Feeling abnormal [Unknown]
  - Rash [Not Recovered/Not Resolved]
  - Back pain [Not Recovered/Not Resolved]
  - Brain fog [Not Recovered/Not Resolved]
  - Myalgia [Not Recovered/Not Resolved]
